FAERS Safety Report 4735442-8 (Version None)
Quarter: 2005Q3

REPORT INFORMATION
  Report Type: 
  Country: None (occurrence: None)
  Receive Date: 20050805
  Receipt Date: 20050801
  Transmission Date: 20060218
  Serious: Yes (Hospitalization)
  Sender: FDA-Public Use
  Company Number: US-JNJFOC-20050702901

PATIENT
  Sex: Female
  Weight: 62.6 kg

DRUGS (1)
  1. REMICADE [Suspect]
     Indication: CROHN'S DISEASE

REACTIONS (8)
  - ABDOMINAL PAIN [None]
  - BACK PAIN [None]
  - CHILLS [None]
  - CROHN'S DISEASE [None]
  - NIGHT SWEATS [None]
  - PYREXIA [None]
  - RENAL DISORDER [None]
  - RENAL INFARCT [None]
